FAERS Safety Report 7509035-3 (Version None)
Quarter: 2011Q2

REPORT INFORMATION
  Report Type: 
  Country: None (occurrence: None)
  Receive Date: 20110527
  Receipt Date: 20110524
  Transmission Date: 20111010
  Serious: Yes (Other)
  Sender: FDA-Public Use
  Company Number: FR-PFIZER INC-2011053034

PATIENT
  Age: 62 Year
  Sex: Female

DRUGS (1)
  1. LYRICA [Suspect]
     Indication: NEURITIS
     Dosage: 50 MG, 2X/DAY

REACTIONS (11)
  - NERVOUSNESS [None]
  - HOT FLUSH [None]
  - EYE PAIN [None]
  - CHILLS [None]
  - MUSCLE CONTRACTURE [None]
  - MUSCLE SPASMS [None]
  - ANXIETY [None]
  - DRY EYE [None]
  - EYE IRRITATION [None]
  - MUSCLE RIGIDITY [None]
  - SCHIZOPHRENIA [None]
